FAERS Safety Report 18237270 (Version 2)
Quarter: 2020Q3

REPORT INFORMATION
  Report Type: Spontaneous
  Country: BR (occurrence: BR)
  Receive Date: 20200907
  Receipt Date: 20200915
  Transmission Date: 20201103
  Serious: No
  Sender: FDA-Public Use
  Company Number: BR-GLAXOSMITHKLINE-BR2020AMR173297

PATIENT
  Sex: Female
  Weight: 80 kg

DRUGS (1)
  1. VANISTO [Suspect]
     Active Substance: UMECLIDINIUM BROMIDE
     Indication: ASTHMA
     Dosage: 1 DF, QD

REACTIONS (7)
  - Abdominal pain [Recovered/Resolved]
  - Skin warm [Recovered/Resolved]
  - Abdominal discomfort [Recovered/Resolved]
  - Pain [Recovered/Resolved]
  - Oropharyngeal pain [Recovered/Resolved]
  - Rash macular [Recovered/Resolved]
  - Dysphagia [Recovered/Resolved]
